FAERS Safety Report 5870298-1 (Version None)
Quarter: 2008Q3

REPORT INFORMATION
  Report Type: 
  Country: None (occurrence: None)
  Receive Date: 20080904
  Receipt Date: 20070829
  Transmission Date: 20090109
  Serious: No
  Sender: FDA-Public Use
  Company Number: US-BRISTOL-MYERS SQUIBB COMPANY-13891684

PATIENT
  Age: 92 Year
  Sex: Female

DRUGS (8)
  1. DEFINITY [Suspect]
     Indication: ECHOCARDIOGRAM
     Dosage: IN NORMAL SALINE.
     Route: 042
     Dates: start: 20070826, end: 20070826
  2. ACTONEL [Concomitant]
  3. APRESOLINE [Concomitant]
  4. VICODIN [Concomitant]
  5. COUMADIN [Concomitant]
  6. AMBIEN [Concomitant]
  7. XANAX [Concomitant]
  8. CALCIUM [Concomitant]

REACTIONS (1)
  - BACK PAIN [None]
